FAERS Safety Report 6908916-9 (Version None)
Quarter: 2010Q3

REPORT INFORMATION
  Report Type: 
  Country: None (occurrence: None)
  Receive Date: 20100805
  Receipt Date: 20100803
  Transmission Date: 20110219
  Serious: Yes (Other)
  Sender: FDA-Public Use
  Company Number: GXKR2010DE08619

PATIENT
  Sex: Female

DRUGS (1)
  1. DOXY 1A PHARMA (NGX) [Suspect]
     Indication: ARTHROPOD BITE
     Dosage: 200 MG, TID
     Route: 048

REACTIONS (6)
  - ASTHENIA [None]
  - CIRCULATORY COLLAPSE [None]
  - DIARRHOEA [None]
  - DIZZINESS [None]
  - NAUSEA [None]
  - PYREXIA [None]
